FAERS Safety Report 15322210 (Version 2)
Quarter: 2018Q3

REPORT INFORMATION
  Report Type: Spontaneous
  Country: RS (occurrence: RS)
  Receive Date: 20180827
  Receipt Date: 20180906
  Transmission Date: 20181010
  Serious: Yes (Other)
  Sender: FDA-Public Use
  Company Number: RS-JNJFOC-20180832795

PATIENT

DRUGS (5)
  1. DOXORUBICIN HYDROCHLORIDE. [Suspect]
     Active Substance: DOXORUBICIN HYDROCHLORIDE
     Indication: NASOPHARYNGEAL CANCER
     Route: 065
  2. CYCLOPHOSPHAMIDE. [Suspect]
     Active Substance: CYCLOPHOSPHAMIDE
     Indication: NASOPHARYNGEAL CANCER
     Route: 065
  3. DOXORUBICIN HYDROCHLORIDE. [Suspect]
     Active Substance: DOXORUBICIN HYDROCHLORIDE
     Indication: NASOPHARYNGEAL CANCER
     Route: 065
  4. ACTINOMYCIN D [Suspect]
     Active Substance: DACTINOMYCIN
     Indication: NASOPHARYNGEAL CANCER
     Route: 065
  5. VINCRISTINE [Suspect]
     Active Substance: VINCRISTINE
     Indication: NASOPHARYNGEAL CANCER
     Route: 065

REACTIONS (10)
  - Dry mouth [Unknown]
  - Trismus [Unknown]
  - Hypothyroidism [Unknown]
  - Nephropathy toxic [Unknown]
  - Fibrosis [Unknown]
  - Venoocclusive liver disease [Unknown]
  - Deafness neurosensory [Unknown]
  - Infection [Unknown]
  - Cardiotoxicity [Unknown]
  - Empty sella syndrome [Unknown]
